FAERS Safety Report 11646427 (Version 1)
Quarter: 2015Q4

REPORT INFORMATION
  Report Type: Spontaneous
  Country: US (occurrence: US)
  Receive Date: 20151020
  Receipt Date: 20151020
  Transmission Date: 20160304
  Serious: No
  Sender: FDA-Public Use
  Company Number: US-ROCHE-ITM201505IM015750

PATIENT
  Sex: Male
  Weight: 84.9 kg

DRUGS (3)
  1. ESBRIET [Suspect]
     Active Substance: PIRFENIDONE
     Indication: IDIOPATHIC PULMONARY FIBROSIS
     Route: 048
     Dates: start: 20150516, end: 20150801
  2. ESBRIET [Suspect]
     Active Substance: PIRFENIDONE
     Dosage: 267 MG 1 CAPSULE 3 TIMES A DAY
     Route: 048
     Dates: start: 20150508
  3. ESBRIET [Suspect]
     Active Substance: PIRFENIDONE
     Route: 048
     Dates: start: 20150508

REACTIONS (4)
  - Drug ineffective [Unknown]
  - Nausea [Recovered/Resolved]
  - Abdominal discomfort [Unknown]
  - Diarrhoea [Recovered/Resolved]
